FAERS Safety Report 7816923-7 (Version None)
Quarter: 2011Q4

REPORT INFORMATION
  Report Type: 
  Country: None (occurrence: None)
  Receive Date: 20111017
  Receipt Date: 20111003
  Transmission Date: 20120403
  Serious: Yes (Hospitalization)
  Sender: FDA-Public Use
  Company Number: US-ELI_LILLY_AND_COMPANY-US201003004220

PATIENT
  Sex: Female

DRUGS (22)
  1. DIAZEPAM [Concomitant]
     Dosage: UNK, AS NEEDED
  2. LACTULOSE [Concomitant]
  3. PEPCID [Concomitant]
  4. VITAMIN B6 [Concomitant]
  5. FLONASE [Concomitant]
  6. PHENERGAN HCL [Concomitant]
  7. TRIAMTERENE AND HYDROCHLOROTHIAZIDE [Concomitant]
  8. VITAMIN E [Concomitant]
  9. FORTEO [Suspect]
     Dosage: 20 UG, QD
  10. ANAFRANIL [Concomitant]
     Dosage: 175 MG, EACH EVENING
  11. CALTRATE + VITAMIN D [Concomitant]
     Dosage: UNK, 2/D
  12. METHADONE [Concomitant]
  13. ZOCOR [Concomitant]
  14. NYSTATIN [Concomitant]
  15. OMEPRAZOLE [Concomitant]
  16. FORTEO [Suspect]
     Dosage: 20 UG, DAILY (1/D)
  17. CHLORAL HYDRATE [Concomitant]
     Indication: SLEEP DISORDER
  18. FORTEO [Suspect]
     Indication: OSTEOPOROSIS
     Dosage: 20 UG, DAILY (1/D)
     Dates: start: 20091201
  19. BACLOFEN [Concomitant]
     Indication: MUSCLE RELAXANT THERAPY
  20. IRON [Concomitant]
  21. FORTEO [Suspect]
     Dosage: 20 UG, QD
  22. LORTAB [Concomitant]

REACTIONS (16)
  - KNEE ARTHROPLASTY [None]
  - SKIN DISORDER [None]
  - ARTHRALGIA [None]
  - MUSCULOSKELETAL DISORDER [None]
  - PAIN [None]
  - BACK DISORDER [None]
  - MYALGIA [None]
  - ARTHRITIS [None]
  - FIBROMYALGIA [None]
  - BONE DENSITY ABNORMAL [None]
  - CELLULITIS [None]
  - ERYTHEMA [None]
  - OEDEMA PERIPHERAL [None]
  - PAIN IN EXTREMITY [None]
  - URINARY TRACT INFECTION [None]
  - MOBILITY DECREASED [None]
